FAERS Safety Report 20975619 (Version 2)
Quarter: 2022Q2

REPORT INFORMATION
  Report Type: Other
  Country: US (occurrence: None)
  Receive Date: 20220617
  Receipt Date: 20220628
  Transmission Date: 20220721
  Serious: Yes (Hospitalization)
  Sender: FDA-Public Use
  Company Number: US-ROCHE-3119059

PATIENT
  Sex: Female

DRUGS (1)
  1. OCREVUS [Suspect]
     Active Substance: OCRELIZUMAB
     Indication: Relapsing-remitting multiple sclerosis
     Dosage: 300 MG IN DAY 1 AND 15 THEN 600 MG EVERY 6 MONTHS?DATE OF TREATMENT: 15/OCT/2019, 21/MAY/2020, 21/DE
     Route: 042
     Dates: start: 20191001

REACTIONS (3)
  - Depression [Unknown]
  - Hip fracture [Unknown]
  - Urinary tract infection [Unknown]
